FAERS Safety Report 20074477 (Version 1)
Quarter: 2021Q4

REPORT INFORMATION
  Report Type: Spontaneous
  Country: US (occurrence: None)
  Receive Date: 20211115
  Receipt Date: 20211115
  Transmission Date: 20220303
  Serious: Yes (Hospitalization)
  Sender: FDA-Public Use
  Company Number: None

PATIENT
  Age: 67 Year
  Sex: Male

DRUGS (2)
  1. PEMBROLIZUMAB [Suspect]
     Active Substance: PEMBROLIZUMAB
     Indication: Transitional cell carcinoma
     Dates: start: 20200831, end: 20210513
  2. PEMBROLIZUMAB [Suspect]
     Active Substance: PEMBROLIZUMAB
     Indication: Metastasis

REACTIONS (8)
  - Pyelonephritis [None]
  - Pemphigoid [None]
  - Pain [None]
  - Oral discomfort [None]
  - Scab [None]
  - Eating disorder [None]
  - Speech disorder [None]
  - Sensitive skin [None]

NARRATIVE: CASE EVENT DATE: 20210820
